FAERS Safety Report 25099044 (Version 1)
Quarter: 2025Q1

REPORT INFORMATION
  Report Type: Spontaneous
  Country: GB (occurrence: GB)
  Receive Date: 20250320
  Receipt Date: 20250320
  Transmission Date: 20250409
  Serious: Yes (Other)
  Sender: ROCHE
  Company Number: None

PATIENT
  Age: 41 Year
  Sex: Male
  Weight: 94 kg

DRUGS (3)
  1. OSELTAMIVIR [Suspect]
     Active Substance: OSELTAMIVIR
     Indication: Influenza
     Dosage: ONE EVERY 12 HOURS
     Route: 065
     Dates: start: 20250225, end: 20250301
  2. ALLOPURINOL [Concomitant]
     Active Substance: ALLOPURINOL
     Dosage: ONE DAILY FOR ONE MONTH , THEN ATTEND FOR BLOOD TEST
     Dates: start: 20250130
  3. AMOXICILLIN [Concomitant]
     Active Substance: AMOXICILLIN
     Dosage: ONE TO BE TAKEN THREE TIMES A DAY
     Dates: start: 20250306

REACTIONS (4)
  - Paranoia [Recovering/Resolving]
  - Hallucination [Unknown]
  - Thinking abnormal [Unknown]
  - Visual impairment [Unknown]

NARRATIVE: CASE EVENT DATE: 20250301
